FAERS Safety Report 7367107-0 (Version None)
Quarter: 2011Q1

REPORT INFORMATION
  Report Type: 
  Country: None (occurrence: None)
  Receive Date: 20110322
  Receipt Date: 20110308
  Transmission Date: 20110831
  Serious: Yes (Hospitalization, Other)
  Sender: FDA-Public Use
  Company Number: US-JNJFOC-20080905265

PATIENT
  Sex: Female

DRUGS (6)
  1. FOLIC ACID [Concomitant]
  2. REMICADE [Suspect]
     Dosage: TOTAL 13 DOSES
     Route: 042
  3. MULTIPLE VITAMINS [Concomitant]
  4. S-ASA [Concomitant]
  5. MERCAPTOPURINE [Concomitant]
  6. REMICADE [Suspect]
     Indication: COLITIS
     Route: 042

REACTIONS (3)
  - CYTOMEGALOVIRUS VIRAEMIA [None]
  - HAEMORRHAGE [None]
  - DIARRHOEA [None]
